FAERS Safety Report 17275604 (Version 1)
Quarter: 2020Q1

REPORT INFORMATION
  Report Type: Report from Study
  Country: US (occurrence: US)
  Receive Date: 20200116
  Receipt Date: 20200116
  Transmission Date: 20200409
  Serious: Yes (Hospitalization, Other)
  Sender: FDA-Public Use
  Company Number: US-SA-2018SA191745

PATIENT
  Age: 55 Year
  Sex: Female

DRUGS (1)
  1. ALEMTUZUMAB [Suspect]
     Active Substance: ALEMTUZUMAB
     Indication: MULTIPLE SCLEROSIS
     Dosage: 12 MG, QD
     Route: 041
     Dates: start: 20180625, end: 20180629

REACTIONS (27)
  - Pallor [Unknown]
  - Jaundice [Unknown]
  - Immune thrombocytopenic purpura [Unknown]
  - Pain in extremity [Recovered/Resolved]
  - Autoimmune haemolytic anaemia [Unknown]
  - Dyspnoea [Recovered/Resolved]
  - Abdominal pain upper [Not Recovered/Not Resolved]
  - Cough [Not Recovered/Not Resolved]
  - Gait disturbance [Unknown]
  - Haemoglobin decreased [Not Recovered/Not Resolved]
  - Blood iron decreased [Unknown]
  - Gastrointestinal disorder [Not Recovered/Not Resolved]
  - Chest pain [Recovered/Resolved]
  - White blood cell count decreased [Unknown]
  - Deep vein thrombosis [Unknown]
  - Eye colour change [Unknown]
  - Fatigue [Not Recovered/Not Resolved]
  - Headache [Not Recovered/Not Resolved]
  - Inflammation [Not Recovered/Not Resolved]
  - Diarrhoea [Not Recovered/Not Resolved]
  - Dizziness [Not Recovered/Not Resolved]
  - Poor venous access [Recovered/Resolved]
  - Abdominal distension [Unknown]
  - Infection [Unknown]
  - Rash [Recovered/Resolved]
  - Confusional state [Not Recovered/Not Resolved]
  - Hypoaesthesia [Not Recovered/Not Resolved]

NARRATIVE: CASE EVENT DATE: 2018
